FAERS Safety Report 6245456-7 (Version None)
Quarter: 2009Q2

REPORT INFORMATION
  Report Type: 
  Country: None (occurrence: None)
  Receive Date: 20090625
  Receipt Date: 20090616
  Transmission Date: 20091009
  Serious: Yes (Hospitalization)
  Sender: FDA-Public Use
  Company Number: PHHY2009MX23111

PATIENT
  Age: 85 Year
  Sex: Male

DRUGS (3)
  1. ACLASTA [Suspect]
     Indication: OSTEOPOROSIS
     Dosage: 5 MG/100 ML
     Dates: start: 20080601
  2. ENALAPRIL [Concomitant]
     Indication: HYPERTENSION
     Dosage: 2 TABLETS PER DAY
  3. TENORETIC 100 [Concomitant]
     Indication: HYPERTENSION
     Dosage: 1 TABLET PER DAY

REACTIONS (3)
  - DRUG INEFFECTIVE [None]
  - HIP SURGERY [None]
  - JOINT ARTHROPLASTY [None]
